FAERS Safety Report 6507218-2 (Version None)
Quarter: 2009Q4

REPORT INFORMATION
  Report Type: 
  Country: None (occurrence: None)
  Receive Date: 20091221
  Receipt Date: 20091211
  Transmission Date: 20100525
  Serious: Yes (Hospitalization)
  Sender: FDA-Public Use
  Company Number: PHHY2009CA28494

PATIENT
  Sex: Female
  Weight: 55 kg

DRUGS (7)
  1. EXJADE [Suspect]
     Indication: MYELODYSPLASTIC SYNDROME
     Dosage: 1500 MG
     Route: 048
  2. EXJADE [Suspect]
     Indication: IRON OVERLOAD
     Dosage: 1000 MG, QD
     Route: 048
     Dates: start: 20090601
  3. ACTONEL [Concomitant]
     Dosage: 35 MG, QW
  4. OGEN [Concomitant]
     Dosage: 1.25 MG, QD
  5. VITAMIN D [Concomitant]
     Dosage: 1000 IU EVERY OTHER DAY
  6. LOVAZA [Concomitant]
     Dosage: 1000 MG, QD
  7. ESTROGEN NOS [Concomitant]

REACTIONS (5)
  - DYSPEPSIA [None]
  - GASTROOESOPHAGEAL REFLUX DISEASE [None]
  - INTESTINAL OBSTRUCTION [None]
  - POLLAKIURIA [None]
  - SLEEP DISORDER [None]
